FAERS Safety Report 18919808 (Version 2)
Quarter: 2021Q1

REPORT INFORMATION
  Report Type: Report from Study
  Country: US (occurrence: US)
  Receive Date: 20210221
  Receipt Date: 20210318
  Transmission Date: 20210420
  Serious: No
  Sender: FDA-Public Use
  Company Number: NVSC2021US037405

PATIENT
  Sex: Female

DRUGS (1)
  1. XIIDRA [Suspect]
     Active Substance: LIFITEGRAST
     Indication: PRODUCT USED FOR UNKNOWN INDICATION
     Dosage: 5 %
     Route: 047

REACTIONS (5)
  - Arthralgia [Unknown]
  - Migraine [Unknown]
  - Pain in extremity [Unknown]
  - Spinal stenosis [Unknown]
  - Back pain [Unknown]
